FAERS Safety Report 7315225-5 (Version None)
Quarter: 2011Q1

REPORT INFORMATION
  Report Type: 
  Country: None (occurrence: None)
  Receive Date: 20110225
  Receipt Date: 20110215
  Transmission Date: 20110831
  Serious: Yes (Hospitalization, Other)
  Sender: FDA-Public Use
  Company Number: NL-ROCHE-756394

PATIENT
  Sex: Female

DRUGS (21)
  1. CALCICHEW D3 [Concomitant]
     Dosage: DOSE: 500/400 QD
  2. VENTOLIN [Concomitant]
     Dosage: FREQUENCY: AS NECESSARY
  3. OMEPRAZOLE [Concomitant]
     Dosage: FREQUENCY: QD
  4. HYDROCHLOROTHIAZIDE [Concomitant]
     Dosage: FREQUENCY: QD
  5. SIMVASTATIN [Concomitant]
     Dosage: FREQUENCY: QD
  6. THYRAX [Concomitant]
     Dosage: FREQUENCY: QD
  7. FLIXOTIDE [Concomitant]
  8. TRAMAL [Concomitant]
     Dosage: FREQUENCY: PRN
  9. EZETROL [Concomitant]
     Dosage: FREQUENCY: QD
  10. PAROXETINE [Concomitant]
     Dosage: FREQUENCY: QD
  11. LANTUS [Concomitant]
     Dosage: 30-0-30-0 UNITS
  12. AMIODARONE [Concomitant]
     Dosage: FREQUENCY: QD
  13. FOLIC ACID [Concomitant]
  14. PREDNISONE [Concomitant]
     Dosage: FREQUENCY: QD
  15. ROACTEMRA [Suspect]
     Indication: RHEUMATOID ARTHRITIS
     Route: 042
     Dates: start: 20100201, end: 20110101
  16. METOPROLOL SUCCINATE [Concomitant]
     Dosage: FREQUENCY: QD
  17. MAGNESIUM OXIDE [Concomitant]
  18. METFORMIN HCL [Concomitant]
  19. ALENDRONIC ACID [Concomitant]
  20. PARACETAMOL [Concomitant]
     Dosage: FREQUENCY: PRN
  21. COLCHICIN [Concomitant]
     Dosage: FREQUENCY: PRN

REACTIONS (2)
  - HYPERTENSION [None]
  - ATRIAL FIBRILLATION [None]
